FAERS Safety Report 12959543 (Version 4)
Quarter: 2017Q1

REPORT INFORMATION
  Report Type: Report from Study
  Country: US (occurrence: US)
  Receive Date: 20161121
  Receipt Date: 20170202
  Transmission Date: 20170428
  Serious: Yes (Hospitalization, Other)
  Sender: FDA-Public Use
  Company Number: US-GILEAD-2016-0243408

PATIENT
  Age: 41 Year
  Sex: Male

DRUGS (3)
  1. AMBRISENTAN [Suspect]
     Active Substance: AMBRISENTAN
     Indication: PRODUCT USED FOR UNKNOWN INDICATION
     Dosage: 10 MG, QD
     Route: 065
     Dates: start: 20161028
  2. REMODULIN [Concomitant]
     Active Substance: TREPROSTINIL
  3. REVATIO [Concomitant]
     Active Substance: SILDENAFIL CITRATE

REACTIONS (8)
  - Administration site infection [Unknown]
  - Upper respiratory tract infection [Unknown]
  - Neuropathy peripheral [Not Recovered/Not Resolved]
  - Flushing [Not Recovered/Not Resolved]
  - Breast mass [Not Recovered/Not Resolved]
  - Hypotension [Unknown]
  - Heart rate increased [Unknown]
  - Gout [Unknown]

NARRATIVE: CASE EVENT DATE: 20161206
